FAERS Safety Report 12345874 (Version 1)
Quarter: 2016Q2

REPORT INFORMATION
  Report Type: Spontaneous
  Country: BR (occurrence: BR)
  Receive Date: 20160509
  Receipt Date: 20160509
  Transmission Date: 20160815
  Serious: Yes (Other)
  Sender: FDA-Public Use
  Company Number: BR-ROCHE-1753478

PATIENT
  Age: 83 Year
  Sex: Male
  Weight: 85 kg

DRUGS (8)
  1. DIOSMIN [Concomitant]
     Active Substance: DIOSMIN
     Indication: CARDIOVASCULAR DISORDER
     Dosage: PATIENT HAS BEEN TAKING THE SECOND BOX
     Route: 065
  2. LEXOTAN [Suspect]
     Active Substance: BROMAZEPAM
     Indication: PRODUCT USED FOR UNKNOWN INDICATION
     Route: 065
  3. INDAPEN [Concomitant]
     Active Substance: INDAPAMIDE
     Indication: BLOOD PRESSURE ABNORMAL
     Dosage: TREATMENT HAS BEEN INTERRUPTED WHILE PATIENT TAKES FUROSEMIDE
     Route: 065
  4. ALLOPURINOL. [Concomitant]
     Active Substance: ALLOPURINOL
     Indication: BLOOD URIC ACID ABNORMAL
     Dosage: TREATMENT HAS BEEN INTERRUPTED WHILE PATIENT TAKES DIOSMIN
     Route: 065
  5. RIVOTRIL [Suspect]
     Active Substance: CLONAZEPAM
     Route: 065
  6. LOSARTAN. [Concomitant]
     Active Substance: LOSARTAN
     Indication: BLOOD PRESSURE ABNORMAL
     Dosage: 2 YEARS PRIOR TO THIS REPORT
     Route: 065
     Dates: start: 2014
  7. FUROSEMIDE. [Concomitant]
     Active Substance: FUROSEMIDE
     Indication: SWELLING
     Dosage: 2 MONTHS PRIOR TO THIS REPORT
     Route: 065
     Dates: start: 2016
  8. RIVOTRIL [Suspect]
     Active Substance: CLONAZEPAM
     Indication: INSOMNIA
     Route: 065

REACTIONS (6)
  - Underdose [Unknown]
  - Insomnia [Unknown]
  - Body height decreased [Unknown]
  - Withdrawal syndrome [Unknown]
  - Drug dispensing error [Unknown]
  - Drug ineffective [Unknown]
